FAERS Safety Report 25287551 (Version 1)
Quarter: 2025Q2

REPORT INFORMATION
  Report Type: Spontaneous
  Country: US (occurrence: None)
  Receive Date: 20250508
  Receipt Date: 20250508
  Transmission Date: 20250716
  Serious: Yes (Life-Threatening)
  Sender: FDA-CTU
  Company Number: None

PATIENT
  Age: 72 Year
  Sex: Female
  Weight: 58.95 kg

DRUGS (4)
  1. ENHERTU [Suspect]
     Active Substance: FAM-TRASTUZUMAB DERUXTECAN-NXKI
     Indication: HER2 positive ovarian cancer
     Route: 041
     Dates: start: 20250502, end: 20250502
  2. KYTRIL [Concomitant]
     Active Substance: GRANISETRON HYDROCHLORIDE
     Dates: start: 20250502, end: 20250502
  3. DEXAMETHASONE [Concomitant]
     Active Substance: DEXAMETHASONE
     Dates: start: 20250502, end: 20250502
  4. CINVANTI [Concomitant]
     Active Substance: APREPITANT
     Dates: start: 20250502, end: 20250502

REACTIONS (3)
  - Bradycardia [None]
  - Cardiac arrest [None]
  - Cardiac arrest [None]

NARRATIVE: CASE EVENT DATE: 20250502
